FAERS Safety Report 18616708 (Version 1)
Quarter: 2020Q4

REPORT INFORMATION
  Report Type: Spontaneous
  Country: AU (occurrence: AU)
  Receive Date: 20201215
  Receipt Date: 20201215
  Transmission Date: 20210114
  Serious: Yes (Other)
  Sender: FDA-Public Use
  Company Number: AU-SUN PHARMACEUTICAL INDUSTRIES LTD-2020RR-271289

PATIENT
  Age: 22 Year
  Sex: Male

DRUGS (5)
  1. OXYCODONE [Suspect]
     Active Substance: OXYCODONE
     Indication: SPINAL CORD INJURY
     Dosage: UNK
     Route: 048
  2. NORTRIPTYLINE [Suspect]
     Active Substance: NORTRIPTYLINE
     Indication: SPINAL CORD INJURY
     Dosage: 50 MILLIGRAM, QD
     Route: 048
  3. KETAMINE [Suspect]
     Active Substance: KETAMINE
     Indication: SPINAL CORD INJURY
     Dosage: UNK
     Route: 042
  4. PARACETAMOL [Suspect]
     Active Substance: ACETAMINOPHEN
     Indication: SPINAL CORD INJURY
     Dosage: UNK
     Route: 065
  5. MORPHINE [Suspect]
     Active Substance: MORPHINE
     Indication: SPINAL CORD INJURY
     Dosage: UNK
     Route: 065

REACTIONS (2)
  - Drug resistance [Unknown]
  - Therapeutic product effect incomplete [Unknown]
